FAERS Safety Report 5153347-8 (Version None)
Quarter: 2006Q4

REPORT INFORMATION
  Report Type: 
  Country: None (occurrence: None)
  Receive Date: 20061117
  Receipt Date: 20060927
  Transmission Date: 20070319
  Serious: Yes (Disabling, Other)
  Sender: FDA-Public Use
  Company Number: US-BRISTOL-MYERS SQUIBB COMPANY-13527312

PATIENT
  Age: 41 Year
  Sex: Female

DRUGS (3)
  1. KENALOG [Suspect]
     Indication: MACULAR OEDEMA
     Route: 031
     Dates: start: 20060626, end: 20060814
  2. COSOPT [Concomitant]
  3. PRED FORTE [Concomitant]

REACTIONS (2)
  - ALPHA HAEMOLYTIC STREPTOCOCCAL INFECTION [None]
  - ENDOPHTHALMITIS [None]
